FAERS Safety Report 7130419-X (Version None)
Quarter: 2010Q4

REPORT INFORMATION
  Report Type: 
  Country: None (occurrence: None)
  Receive Date: 20101101
  Receipt Date: 20100716
  Transmission Date: 20110411
  Serious: No
  Sender: FDA-Public Use
  Company Number: 2010-09652

PATIENT
  Age: 67 Year
  Sex: Male

DRUGS (4)
  1. RAPAFLO [Suspect]
     Indication: BENIGN PROSTATIC HYPERPLASIA
     Dosage: 8 MG, DAILY, ORAL
     Route: 048
     Dates: start: 20100709, end: 20100714
  2. FLONASE [Concomitant]
  3. SALINEX NASAL (SODIUM CHLORIDE) [Concomitant]
  4. FEXOFENADINE HCL [Concomitant]

REACTIONS (3)
  - INCREASED UPPER AIRWAY SECRETION [None]
  - NASAL CONGESTION [None]
  - SNEEZING [None]
